FAERS Safety Report 12937594 (Version 1)
Quarter: 2016Q4

REPORT INFORMATION
  Report Type: Spontaneous
  Country: US (occurrence: US)
  Receive Date: 20161114
  Receipt Date: 20161114
  Transmission Date: 20170207
  Serious: Yes (Other)
  Sender: FDA-Public Use
  Company Number: US-IPSEN BIOPHARMACEUTICALS, INC.-2016-09469

PATIENT
  Sex: Male

DRUGS (2)
  1. INCRELEX [Suspect]
     Active Substance: MECASERMIN
     Indication: PRODUCT USE ISSUE
  2. INCRELEX [Suspect]
     Active Substance: MECASERMIN
     Indication: FAILURE TO THRIVE
     Route: 058
     Dates: start: 201408, end: 201610

REACTIONS (4)
  - Cough [Recovering/Resolving]
  - Rhinorrhoea [Recovered/Resolved]
  - Viral infection [Unknown]
  - Pyrexia [Recovered/Resolved]

NARRATIVE: CASE EVENT DATE: 2016
